FAERS Safety Report 25608222 (Version 2)
Quarter: 2025Q3

REPORT INFORMATION
  Report Type: Spontaneous
  Country: EU (occurrence: EU)
  Receive Date: 20250725
  Receipt Date: 20250725
  Transmission Date: 20251020
  Serious: Yes (Hospitalization, Other)
  Sender: MERCK SHARP & DOHME LLC
  Company Number: EU-009507513-2286490

PATIENT
  Age: 65 Year
  Sex: Male

DRUGS (3)
  1. PEMBROLIZUMAB [Suspect]
     Active Substance: PEMBROLIZUMAB
     Indication: Metastatic malignant melanoma
     Dates: start: 20190717, end: 202310
  2. AMLODIPINE BESYLATE\PERINDOPRIL ARGININE [Concomitant]
     Active Substance: AMLODIPINE BESYLATE\PERINDOPRIL ARGININE
  3. Tamsolusin [Concomitant]
     Dosage: 0.4 MG 0 - 0 - 1

REACTIONS (11)
  - Weight decreased [Unknown]
  - Diarrhoea [Unknown]
  - Body temperature increased [Unknown]
  - Functional gastrointestinal disorder [Unknown]
  - Cytomegalovirus colitis [Unknown]
  - Therapy partial responder [Unknown]
  - Incorrect product administration duration [Unknown]
  - Tumour excision [Unknown]
  - Therapy partial responder [Unknown]
  - Cytomegalovirus infection [Unknown]
  - Viraemia [Unknown]

NARRATIVE: CASE EVENT DATE: 20200101
